FAERS Safety Report 6902473-9 (Version None)
Quarter: 2010Q3

REPORT INFORMATION
  Report Type: 
  Country: None (occurrence: None)
  Receive Date: 20100802
  Receipt Date: 20100802
  Transmission Date: 20110219
  Serious: Yes (Hospitalization)
  Sender: FDA-Public Use
  Company Number: None

PATIENT
  Sex: Female
  Weight: 63.9 kg

DRUGS (5)
  1. RITUXIMAB 100 MG /VIAL [Suspect]
     Indication: NON-HODGKIN'S LYMPHOMA
     Dosage: 600 MG DAY 1 OF 21 DAY CYC IV
     Route: 042
     Dates: start: 20100316, end: 20100706
  2. CYCLOPHOSPHAMIDE 400 MG/VIAL [Suspect]
     Indication: NON-HODGKIN'S LYMPHOMA
     Dosage: 1200 MG DAY 1 OF 21 DAY CYC IV
     Route: 042
     Dates: start: 20100316, end: 20100706
  3. DOXORUBICIN HCL [Concomitant]
  4. VINCRISTINE [Concomitant]
  5. PREDNISONE [Concomitant]

REACTIONS (3)
  - BODY TEMPERATURE INCREASED [None]
  - DYSPNOEA [None]
  - HEADACHE [None]
